FAERS Safety Report 23059025 (Version 7)
Quarter: 2023Q4

REPORT INFORMATION
  Report Type: Report from Study
  Country: FR (occurrence: FR)
  Receive Date: 20231012
  Receipt Date: 20231229
  Transmission Date: 20240110
  Serious: Yes (Death, Hospitalization, Other)
  Sender: FDA-Public Use
  Company Number: FR-ROCHE-3427548

PATIENT
  Age: 77 Year
  Sex: Male
  Weight: 105 kg

DRUGS (53)
  1. PREDNISONE [Suspect]
     Active Substance: PREDNISONE
     Indication: Diffuse large B-cell lymphoma
     Dosage: 100 MILLIGRAM, QD (C1-6, DAY 1-5, EVERY 1 DAYS)
     Route: 048
     Dates: start: 20230816
  2. DOXORUBICIN [Suspect]
     Active Substance: DOXORUBICIN
     Indication: Diffuse large B-cell lymphoma
     Dosage: 100 MILLIGRAM, Q3W
     Route: 042
     Dates: start: 20230816
  3. DOXORUBICIN [Suspect]
     Active Substance: DOXORUBICIN
     Dosage: 50 MILLIGRAM/SQ. METER, Q3W
     Route: 042
     Dates: start: 20230816
  4. RITUXIMAB [Suspect]
     Active Substance: RITUXIMAB
     Indication: Diffuse large B-cell lymphoma
     Dosage: 375 MILLIGRAM/SQ. METER, Q3W
     Route: 042
     Dates: start: 20230816
  5. RITUXIMAB [Suspect]
     Active Substance: RITUXIMAB
     Dosage: 750 MILLIGRAM, Q3W
     Route: 042
     Dates: start: 20230816
  6. CYCLOPHOSPHAMIDE [Suspect]
     Active Substance: CYCLOPHOSPHAMIDE
     Indication: Diffuse large B-cell lymphoma
     Dosage: 750 MILLIGRAM, Q3W
     Route: 042
     Dates: start: 20230816
  7. CYCLOPHOSPHAMIDE [Suspect]
     Active Substance: CYCLOPHOSPHAMIDE
     Dosage: 1500 MILLIGRAM, Q3W, 1500 MG CYCLE 1 DAY 1, EVERY 3 WEEKS
     Route: 042
     Dates: start: 20230816
  8. EPCORITAMAB [Suspect]
     Active Substance: EPCORITAMAB
     Indication: Diffuse large B-cell lymphoma
     Dosage: 0.16 MILLIGRAM (PRIMING DOSE C1, D1) TOTAL
     Route: 058
     Dates: start: 20230816, end: 20230816
  9. EPCORITAMAB [Suspect]
     Active Substance: EPCORITAMAB
     Dosage: 0.8 MILLIGRAM (INTERMEDIATE DOSE C1, D8) TOTAL
     Route: 058
     Dates: start: 20230823, end: 20230823
  10. VINCRISTINE [Suspect]
     Active Substance: VINCRISTINE
     Indication: Diffuse large B-cell lymphoma
     Dosage: 1.4 MILLIGRAM/SQ. METER, Q3W
     Route: 042
     Dates: start: 20230816
  11. VINCRISTINE [Suspect]
     Active Substance: VINCRISTINE
     Dosage: 2 MILLIGRAM, Q3W,2 MG CYCLE 1 DAY 1, EVERY 3 WEEKS
     Route: 042
     Dates: start: 20230816
  12. NEBIVOLOL [Concomitant]
     Active Substance: NEBIVOLOL
     Indication: Hypertension
     Dosage: 2.5 MILLIGRAM, QD
     Route: 065
     Dates: end: 20230828
  13. ZOPICLONE [Concomitant]
     Active Substance: ZOPICLONE
     Indication: Insomnia
     Dosage: 3.75 MILLIGRAM, QD
     Route: 065
     Dates: end: 20230829
  14. CANDESARTAN [Concomitant]
     Active Substance: CANDESARTAN
     Indication: Hypertension
     Dosage: 16 MILLIGRAM, QD (EVERY 1 DAYS)
     Route: 065
     Dates: end: 20230824
  15. PIPERACILLIN SODIUM [Concomitant]
     Active Substance: PIPERACILLIN SODIUM
     Indication: Febrile bone marrow aplasia
     Dosage: 4 GRAM, Q6H
     Route: 065
     Dates: start: 20230824, end: 20230825
  16. NEFOPAM [Concomitant]
     Active Substance: NEFOPAM
     Indication: Product used for unknown indication
     Dosage: 20 MILLIGRAM, PRN (AS NECESSARY)
     Route: 065
     Dates: start: 20230812
  17. DAPTOMYCIN [Concomitant]
     Active Substance: DAPTOMYCIN
     Indication: Febrile bone marrow aplasia
     Dosage: 1000 MILLIGRAM, QD, EVERY 1 DAYS
     Route: 065
     Dates: start: 20230824, end: 20230824
  18. AMIKACIN [Concomitant]
     Active Substance: AMIKACIN
     Indication: Febrile bone marrow aplasia
     Dosage: 3000 MILLIGRAM, TOTAL
     Route: 065
     Dates: start: 20230824, end: 20230824
  19. PANTOPRAZOLE [Concomitant]
     Active Substance: PANTOPRAZOLE
     Indication: Gastrointestinal disorder prophylaxis
     Dosage: 20 MILLIGRAM, QD (EVERY 1 DAYS)
     Route: 065
     Dates: start: 20230809, end: 20230914
  20. PANTOPRAZOLE [Concomitant]
     Active Substance: PANTOPRAZOLE
     Indication: Prophylaxis against gastrointestinal ulcer
  21. IRON [Concomitant]
     Active Substance: IRON
     Indication: Anaemia prophylaxis
     Dosage: 66 MILLIGRAM, BID (2/DAYS)
     Route: 065
     Dates: start: 20230809, end: 20230913
  22. TRAMADOL [Concomitant]
     Active Substance: TRAMADOL\TRAMADOL HYDROCHLORIDE
     Indication: Product used for unknown indication
     Dosage: 150 MILLIGRAM, QD
     Route: 065
     Dates: start: 20230809, end: 20230814
  23. TRAMADOL [Concomitant]
     Active Substance: TRAMADOL\TRAMADOL HYDROCHLORIDE
     Dosage: 100 MILLIGRAM, QD
     Route: 065
     Dates: start: 20230814, end: 20230823
  24. DEXAMETHASONE [Concomitant]
     Active Substance: DEXAMETHASONE
     Indication: Chills
     Dosage: 40 MILLIGRAM, TOTAL
     Route: 065
     Dates: start: 20230824, end: 20230824
  25. DEXAMETHASONE [Concomitant]
     Active Substance: DEXAMETHASONE
     Indication: Wheezing
  26. KARDEGIC [Concomitant]
     Active Substance: ASPIRIN DL-LYSINE
     Indication: Peripheral arterial occlusive disease
     Dosage: 75 MILLIGRAM, BID (2/DAYS)
     Route: 065
     Dates: end: 20230810
  27. KARDEGIC [Concomitant]
     Active Substance: ASPIRIN DL-LYSINE
     Indication: Peripheral artery angioplasty
  28. RILMENIDINE [Concomitant]
     Active Substance: RILMENIDINE
     Indication: Hypertension
     Dosage: 1 MILLIGRAM, QD
     Route: 065
     Dates: end: 20230828
  29. SKENAN [Concomitant]
     Active Substance: MORPHINE SULFATE
     Indication: Product used for unknown indication
     Dosage: 30 MILLIGRAM, BID
     Route: 065
     Dates: start: 20230823
  30. METHYLPREDNISOLONE [Concomitant]
     Active Substance: METHYLPREDNISOLONE
     Indication: Chemotherapy
     Dosage: 100 MG, EVERY 1 DAYS
     Route: 065
     Dates: start: 20230809, end: 20230813
  31. POLYETHYLENE GLYCOLS [Concomitant]
     Active Substance: POLYETHYLENE GLYCOLS
     Indication: Constipation
     Dosage: 10 GRAM, TID
     Route: 065
     Dates: start: 20230814, end: 20230907
  32. PHOSPHORUS [Concomitant]
     Active Substance: PHOSPHORUS
     Indication: Hypophosphataemia
     Dosage: 30 DROPS, 3/DAYS
     Route: 065
     Dates: start: 20230818, end: 20230830
  33. GABAPENTIN [Concomitant]
     Active Substance: GABAPENTIN
     Indication: Product used for unknown indication
     Dosage: 100 MILLIGRAM, TID
     Route: 065
     Dates: start: 20230823
  34. MORPHINE SULFATE [Concomitant]
     Active Substance: MORPHINE SULFATE
     Indication: Product used for unknown indication
     Dosage: 5 MG, AS NECESSARY
     Route: 065
     Dates: start: 20230823
  35. HYDROCHLOROTHIAZIDE [Concomitant]
     Active Substance: HYDROCHLOROTHIAZIDE
     Indication: Hypertension
     Dosage: 12.5 MILLIGRAM, QD
     Route: 065
     Dates: end: 20230924
  36. APIXABAN [Concomitant]
     Active Substance: APIXABAN
     Indication: Arrhythmia
     Dosage: 5 MILLIGRAM, BID
     Route: 065
     Dates: end: 20230828
  37. APIXABAN [Concomitant]
     Active Substance: APIXABAN
     Dosage: 2.5 MILLIGRAM, BID
     Route: 065
     Dates: start: 20230906, end: 20230911
  38. ALLOPURINOL [Concomitant]
     Active Substance: ALLOPURINOL
     Indication: Hyperuricaemia
     Dosage: 100 MILLIGRAM, TID
     Route: 065
     Dates: start: 20230809, end: 20230828
  39. TERBUTALINE [Concomitant]
     Active Substance: TERBUTALINE
     Indication: Oxygen therapy
     Dosage: 5 MILLIGRAM, TOTAL
     Route: 065
     Dates: start: 20230824, end: 20230824
  40. TERBUTALINE [Concomitant]
     Active Substance: TERBUTALINE
     Indication: Oxygen therapy
  41. CLOXACILLIN [Concomitant]
     Active Substance: CLOXACILLIN
     Indication: Febrile bone marrow aplasia
     Dosage: 2 GRAM, Q4H
     Route: 065
     Dates: start: 20230825, end: 20230828
  42. ATORVASTATIN [Concomitant]
     Active Substance: ATORVASTATIN
     Indication: Dyslipidaemia
     Dosage: 10 MILLIGRAM, QD (EVERY 1 DAYS)
     Route: 065
     Dates: start: 20230809, end: 20230902
  43. AMIODARONE HYDROCHLORIDE [Concomitant]
     Active Substance: AMIODARONE HYDROCHLORIDE
     Indication: Arrhythmia
     Dosage: 200 MILLIGRAM, BID
     Route: 065
     Dates: end: 20230810
  44. FILGRASTIM [Concomitant]
     Active Substance: FILGRASTIM
     Indication: Aplasia
     Dosage: 24 MU/L, EVERY 1 DAYS
     Route: 065
     Dates: start: 20230821
  45. TAZOBACTAM [Concomitant]
     Active Substance: TAZOBACTAM
     Indication: Febrile bone marrow aplasia
     Dosage: 0.5 GRAM, Q6H
     Route: 065
     Dates: start: 20230824, end: 20230825
  46. LIDOCAINE [Concomitant]
     Active Substance: LIDOCAINE
     Indication: Product used for unknown indication
     Dosage: 5 PERCENT, QD
     Route: 065
     Dates: start: 20230810, end: 20230906
  47. LIDOCAINE [Concomitant]
     Active Substance: LIDOCAINE
     Dosage: 5 PERCENT, QD
     Route: 065
     Dates: start: 20230817
  48. AMITRIPTYLINE [Concomitant]
     Active Substance: AMITRIPTYLINE
     Indication: Sleep disorder
     Dosage: 5 DROPS, EVERY 1 DAYS
     Route: 065
     Dates: start: 20230809, end: 20230814
  49. VALACYCLOVIR HYDROCHLORIDE [Concomitant]
     Active Substance: VALACYCLOVIR HYDROCHLORIDE
     Indication: Infection prophylaxis
     Dosage: 500 MILLIGRAM, QD
     Route: 065
     Dates: start: 20230831, end: 20230902
  50. POTASSIUM CHLORIDE [Concomitant]
     Active Substance: POTASSIUM CHLORIDE
     Indication: Hypokalaemia
     Dosage: 3600 MILLIGRAM, QD
     Route: 065
     Dates: start: 20230828, end: 20230829
  51. POTASSIUM CHLORIDE [Concomitant]
     Active Substance: POTASSIUM CHLORIDE
     Dosage: 600 MILLIGRAM
     Route: 065
     Dates: start: 20230906
  52. FUROSEMIDE [Concomitant]
     Active Substance: FUROSEMIDE
     Indication: Sodium retention
     Dosage: 20 MILLIGRAM, QD
     Route: 065
     Dates: start: 20230828, end: 20230829
  53. FUROSEMIDE [Concomitant]
     Active Substance: FUROSEMIDE
     Indication: Acute kidney injury
     Dosage: 40 MILLIGRAM, QD
     Route: 065
     Dates: start: 20230905, end: 20230906

REACTIONS (7)
  - Pneumonia [Fatal]
  - Acute kidney injury [Not Recovered/Not Resolved]
  - Cytokine release syndrome [Not Recovered/Not Resolved]
  - Enterobacter pneumonia [Not Recovered/Not Resolved]
  - Escherichia infection [Not Recovered/Not Resolved]
  - Staphylococcal infection [Recovered/Resolved]
  - Off label use [Unknown]

NARRATIVE: CASE EVENT DATE: 20230824
